FAERS Safety Report 21730854 (Version 2)
Quarter: 2023Q1

REPORT INFORMATION
  Report Type: Spontaneous
  Country: CA (occurrence: CA)
  Receive Date: 20221215
  Receipt Date: 20230217
  Transmission Date: 20230417
  Serious: Yes (Other)
  Sender: FDA-Public Use
  Company Number: CA-CELLTRION INC.-2020CA020643

PATIENT

DRUGS (6)
  1. INFLECTRA [Suspect]
     Active Substance: INFLIXIMAB-DYYB
     Indication: Crohn^s disease
     Dosage: 900 MG (10MG/KG) EVERY 4 WEEKS
     Route: 042
     Dates: start: 20200919
  2. INFLECTRA [Suspect]
     Active Substance: INFLIXIMAB-DYYB
     Dosage: 10MG/KG (900 MG) EVERY 4 WEEKS
     Route: 042
     Dates: start: 20200919
  3. INFLECTRA [Suspect]
     Active Substance: INFLIXIMAB-DYYB
     Dosage: 900 MG (10MG/KG) EVERY 4 WEEKS
     Route: 042
     Dates: start: 20201017
  4. INFLECTRA [Suspect]
     Active Substance: INFLIXIMAB-DYYB
     Dosage: 900 MG (10MG/KG) EVERY 4 WEEKS
     Route: 042
     Dates: start: 20201113
  5. INFLECTRA [Suspect]
     Active Substance: INFLIXIMAB-DYYB
     Dosage: 10MG/KG EVERY 8 WEEKS
     Route: 042
     Dates: start: 20210508
  6. INFLECTRA [Suspect]
     Active Substance: INFLIXIMAB-DYYB
     Dosage: 10MG/KG EVERY 8 WEEKS
     Route: 042
     Dates: start: 20221202

REACTIONS (9)
  - Bacterial infection [Not Recovered/Not Resolved]
  - Rosacea [Unknown]
  - Off label use [Unknown]
  - Off label use [Unknown]
  - Intentional product use issue [Unknown]
  - Tonsillar hypertrophy [Unknown]
  - Lymphocyte count increased [Unknown]
  - Nasopharyngitis [Not Recovered/Not Resolved]
  - COVID-19 [Unknown]

NARRATIVE: CASE EVENT DATE: 20210420
